FAERS Safety Report 17745271 (Version 2)
Quarter: 2020Q2

REPORT INFORMATION
  Report Type: Report from Study
  Country: None (occurrence: ES)
  Receive Date: 20200504
  Receipt Date: 20200506
  Transmission Date: 20200714
  Serious: Yes (Hospitalization)
  Sender: FDA-Public Use
  Company Number: ES-ABBVIE-20K-144-3385531-00

PATIENT
  Age: 44 Year
  Sex: Male
  Weight: 59 kg

DRUGS (5)
  1. MICRALAX [Concomitant]
     Indication: PRODUCT USED FOR UNKNOWN INDICATION
     Dates: start: 20200428, end: 20200428
  2. DUODOPA [Suspect]
     Active Substance: CARBIDOPA\LEVODOPA
     Indication: PARKINSON^S DISEASE
     Route: 050
     Dates: start: 20180613, end: 202004
  3. DUODOPA [Suspect]
     Active Substance: CARBIDOPA\LEVODOPA
     Dosage: CONTINUOUS INFUSION PUMP
     Route: 050
     Dates: start: 202004
  4. SINEMET [Suspect]
     Active Substance: CARBIDOPA\LEVODOPA
     Indication: DRUG THERAPY
     Dosage: 150MG IN THE AFTERNOON
     Route: 048
     Dates: start: 20200428, end: 20200428
  5. SINEMET [Suspect]
     Active Substance: CARBIDOPA\LEVODOPA
     Dosage: 120MG IN THE NIGHT
     Route: 048
     Dates: start: 20200428, end: 20200428

REACTIONS (6)
  - Device occlusion [Not Recovered/Not Resolved]
  - Adverse food reaction [Unknown]
  - Device kink [Recovered/Resolved]
  - Musculoskeletal stiffness [Recovered/Resolved]
  - Expired product administered [Unknown]
  - Hyperhidrosis [Recovered/Resolved]

NARRATIVE: CASE EVENT DATE: 202004
